FAERS Safety Report 11736902 (Version 13)
Quarter: 2016Q4

REPORT INFORMATION
  Report Type: Report from Study
  Country: KR (occurrence: KR)
  Receive Date: 20151113
  Receipt Date: 20161229
  Transmission Date: 20170206
  Serious: Yes (Hospitalization)
  Sender: FDA-Public Use
  Company Number: KR-ROCHE-1642981

PATIENT
  Age: 64 Year
  Sex: Female
  Weight: 51.6 kg

DRUGS (95)
  1. SODIUM BICARBONATE. [Concomitant]
     Active Substance: SODIUM BICARBONATE
     Indication: STOMATITIS
     Route: 050
     Dates: start: 20150916, end: 20160122
  2. DEXAMETHASONE. [Concomitant]
     Active Substance: DEXAMETHASONE
     Indication: PREMEDICATION
     Route: 042
     Dates: start: 20150924, end: 20151230
  3. PENIRAMIN [Concomitant]
     Route: 042
     Dates: start: 20151203, end: 20151203
  4. STILNOX [Concomitant]
     Active Substance: ZOLPIDEM TARTRATE
     Indication: INSOMNIA
     Route: 048
     Dates: start: 20151007, end: 20160222
  5. ACTIQ [Concomitant]
     Active Substance: FENTANYL CITRATE
     Indication: STOMATITIS
     Route: 061
     Dates: start: 20151112, end: 20160125
  6. MORPHINE HCL [Concomitant]
     Active Substance: MORPHINE HYDROCHLORIDE
     Indication: MYALGIA
     Route: 042
     Dates: start: 20151005, end: 20151019
  7. ARESTAL [Concomitant]
     Active Substance: LOPERAMIDE OXIDE
     Indication: DIARRHOEA
     Route: 048
     Dates: start: 20160108, end: 20160110
  8. TAMIFLU [Concomitant]
     Active Substance: OSELTAMIVIR PHOSPHATE
     Indication: PROPHYLAXIS
     Route: 048
     Dates: start: 20160108, end: 20160110
  9. TARGOCID [Concomitant]
     Active Substance: TEICOPLANIN
     Indication: PROPHYLAXIS
     Route: 067
     Dates: start: 20160110, end: 20160111
  10. PANTOLOC [Concomitant]
     Active Substance: PANTOPRAZOLE SODIUM
     Indication: PROPHYLAXIS
     Route: 042
     Dates: start: 20160110, end: 20160120
  11. HUMULIN R [Concomitant]
     Active Substance: INSULIN HUMAN
     Route: 058
     Dates: start: 20160113, end: 20160113
  12. BACTROBAN [Concomitant]
     Active Substance: MUPIROCIN\MUPIROCIN CALCIUM
     Indication: STOMATITIS
     Route: 061
     Dates: start: 20150916, end: 20160122
  13. MACPERAN [Concomitant]
     Active Substance: METOCLOPRAMIDE HYDROCHLORIDE
     Route: 048
     Dates: start: 20151119, end: 20151122
  14. LEVOPHED [Concomitant]
     Active Substance: NOREPINEPHRINE BITARTRATE
     Indication: PROPHYLAXIS
     Route: 042
     Dates: start: 20160110, end: 20160112
  15. ETOMIDATE. [Concomitant]
     Active Substance: ETOMIDATE
     Indication: BRONCHOSCOPY
     Route: 042
     Dates: start: 20160110, end: 20160110
  16. XYZAL [Concomitant]
     Active Substance: LEVOCETIRIZINE DIHYDROCHLORIDE
     Indication: PRURITUS
     Route: 048
     Dates: start: 20151206, end: 20151226
  17. TOPISOL (SOUTH KOREA) [Concomitant]
     Indication: PRURITUS
     Route: 061
     Dates: start: 20151208, end: 20151226
  18. TRAVOCORT [Concomitant]
     Indication: RASH
     Route: 061
     Dates: start: 20160120, end: 20160123
  19. TROPHERINE [Concomitant]
     Dosage: INDICATION- USED TO CHECK EYE
     Route: 047
     Dates: start: 20150919, end: 20150919
  20. MORPHINE HCL [Concomitant]
     Active Substance: MORPHINE HYDROCHLORIDE
     Route: 042
     Dates: start: 20160114, end: 20160114
  21. HEPARIN [Concomitant]
     Active Substance: HEPARIN SODIUM
     Indication: PROPHYLAXIS
     Route: 042
     Dates: start: 20160110, end: 20160111
  22. PHOSTEN [Concomitant]
     Route: 042
     Dates: start: 20160115, end: 20160115
  23. HUMULIN R [Concomitant]
     Active Substance: INSULIN HUMAN
     Route: 058
     Dates: start: 20160115, end: 20160115
  24. HUMULIN R [Concomitant]
     Active Substance: INSULIN HUMAN
     Route: 058
     Dates: start: 20160116, end: 20160122
  25. COBIMETINIB [Suspect]
     Active Substance: COBIMETINIB
     Indication: BREAST CANCER METASTATIC
     Dosage: MOST RECENT DOSE PRIOR TO THE EVENTS WAS RECEIVED ON 05/OCT/2015, 03/DEC/2015 AND 08/JAN/2016.
     Route: 048
     Dates: start: 20150926, end: 20151005
  26. MACPERAN [Concomitant]
     Active Substance: METOCLOPRAMIDE HYDROCHLORIDE
     Indication: NAUSEA
     Route: 042
     Dates: start: 20151204, end: 20151211
  27. TOPISOL (SOUTH KOREA) [Concomitant]
     Indication: RASH
     Route: 061
     Dates: start: 20151118, end: 20151124
  28. TRAVOCORT [Concomitant]
     Indication: PRURITUS
     Route: 061
     Dates: start: 20151216, end: 20160226
  29. MAGNESIUM SULFATE. [Concomitant]
     Active Substance: MAGNESIUM SULFATE
     Indication: HYPOMAGNESAEMIA
     Route: 042
     Dates: start: 20151008, end: 20151008
  30. TROPHERINE [Concomitant]
     Route: 047
     Dates: start: 20160108, end: 20160108
  31. IRCODON [Concomitant]
     Indication: MYALGIA
     Route: 048
     Dates: start: 20160108, end: 20160109
  32. PROAMINE [Concomitant]
     Route: 042
     Dates: start: 20151201, end: 20151201
  33. TARGOCID [Concomitant]
     Active Substance: TEICOPLANIN
     Route: 042
     Dates: start: 20160112, end: 20160116
  34. PHOSTEN [Concomitant]
     Route: 042
     Dates: start: 20160112, end: 20160114
  35. HUMULIN R [Concomitant]
     Active Substance: INSULIN HUMAN
     Route: 058
     Dates: start: 20160113, end: 20160113
  36. FRESOFOL MCT [Concomitant]
     Indication: SUPPORTIVE CARE
     Route: 042
     Dates: start: 20160111, end: 20160112
  37. LASIX [Concomitant]
     Active Substance: FUROSEMIDE
     Indication: PROPHYLAXIS
     Route: 042
     Dates: start: 20160111, end: 20160112
  38. EASYEF [Concomitant]
     Indication: RASH
     Route: 061
     Dates: start: 20160119, end: 20160120
  39. ELOCOM [Concomitant]
     Active Substance: MOMETASONE FUROATE
     Indication: PRURITUS
     Route: 061
     Dates: start: 20151208, end: 20151226
  40. BACTROBAN [Concomitant]
     Active Substance: MUPIROCIN\MUPIROCIN CALCIUM
     Indication: RASH
     Route: 061
     Dates: start: 20151115
  41. BACTROBAN [Concomitant]
     Active Substance: MUPIROCIN\MUPIROCIN CALCIUM
     Route: 061
     Dates: start: 20160109, end: 20160109
  42. ALLEGRA [Concomitant]
     Active Substance: FEXOFENADINE HYDROCHLORIDE
     Indication: PRURITUS
     Route: 048
     Dates: start: 20151218, end: 20151226
  43. VASELINE PURE [Concomitant]
     Active Substance: PETROLATUM
     Indication: RASH
     Route: 061
     Dates: start: 20151205, end: 20151226
  44. PHOSTEN [Concomitant]
     Indication: HYPOKALAEMIA
     Route: 042
     Dates: start: 20151210, end: 20151210
  45. PHOSTEN [Concomitant]
     Route: 042
     Dates: start: 20160112, end: 20160114
  46. TROPHERINE [Concomitant]
     Dosage: INDICATION- USED TO CHECK EYE
     Route: 047
     Dates: start: 20150921, end: 20150921
  47. NIMBEX [Concomitant]
     Active Substance: CISATRACURIUM BESYLATE
     Indication: PROPHYLAXIS
     Route: 042
     Dates: start: 20160110, end: 20160111
  48. FENTANYL CITRATE. [Concomitant]
     Active Substance: FENTANYL CITRATE
     Indication: PROPHYLAXIS
     Route: 042
     Dates: start: 20160110, end: 20160112
  49. WINUF PERI [Concomitant]
     Route: 042
     Dates: start: 20160116, end: 20160117
  50. ELOCOM [Concomitant]
     Active Substance: MOMETASONE FUROATE
     Indication: RASH
     Route: 061
     Dates: start: 20151118, end: 20151124
  51. PENIRAMIN [Concomitant]
     Indication: PREMEDICATION
     Route: 042
     Dates: start: 20150924, end: 20151230
  52. PENIRAMIN [Concomitant]
     Route: 042
     Dates: start: 20151218, end: 20151218
  53. CURAN [Concomitant]
     Active Substance: RANITIDINE HYDROCHLORIDE
     Indication: PREMEDICATION
     Route: 042
     Dates: start: 20150924, end: 20151230
  54. GASTER (SOUTH KOREA) [Concomitant]
     Indication: PROPHYLAXIS
     Route: 048
     Dates: start: 20151218, end: 20151218
  55. ALLEGRA [Concomitant]
     Active Substance: FEXOFENADINE HYDROCHLORIDE
     Indication: RASH
     Route: 048
     Dates: start: 20151215, end: 20151226
  56. NEXIUM [Concomitant]
     Active Substance: ESOMEPRAZOLE MAGNESIUM
     Indication: DYSPEPSIA
     Route: 048
     Dates: start: 20151203, end: 20160128
  57. AZEPTIN (SOUTH KOREA) [Concomitant]
     Indication: PRURITUS
     Route: 048
     Dates: start: 20151208, end: 20151226
  58. AZEPTIN (SOUTH KOREA) [Concomitant]
     Indication: RASH
     Route: 048
     Dates: start: 20151118, end: 20151124
  59. MORPHINE HCL [Concomitant]
     Active Substance: MORPHINE HYDROCHLORIDE
     Indication: PROPHYLAXIS
     Route: 042
     Dates: start: 20160117, end: 20160122
  60. TERRAMYCIN OPHTH [Concomitant]
     Indication: NASAL INFLAMMATION
     Route: 061
     Dates: start: 20160108, end: 20160125
  61. PROAMINE [Concomitant]
     Indication: DECREASED APPETITE
     Route: 042
     Dates: start: 20160108, end: 20160108
  62. POTASSIUM CHLORIDE. [Concomitant]
     Active Substance: POTASSIUM CHLORIDE
     Indication: HYPOKALAEMIA
     Route: 042
     Dates: start: 20160110, end: 20160110
  63. HUMULIN R [Concomitant]
     Active Substance: INSULIN HUMAN
     Route: 058
     Dates: start: 20160115, end: 20160115
  64. HUMULIN R [Concomitant]
     Active Substance: INSULIN HUMAN
     Route: 058
     Dates: start: 20160116, end: 20160116
  65. HEXAMEDINE [Concomitant]
     Indication: STOMATITIS
     Route: 050
     Dates: start: 20160111, end: 20160122
  66. PACLITAXEL. [Suspect]
     Active Substance: PACLITAXEL
     Route: 042
  67. VASOPRESSIN. [Concomitant]
     Active Substance: VASOPRESSIN
     Indication: PROPHYLAXIS
     Route: 042
     Dates: start: 20160111, end: 20160111
  68. NEURONTIN (SOUTH KOREA) [Concomitant]
     Indication: PERIPHERAL SENSORY NEUROPATHY
     Route: 048
     Dates: start: 20151203, end: 20151210
  69. LIDOCAINE. [Concomitant]
     Active Substance: LIDOCAINE
     Indication: STOMATITIS
     Route: 050
     Dates: start: 20151112, end: 20160128
  70. FUCIDINE CREME [Concomitant]
     Indication: RASH
     Route: 061
     Dates: start: 20151205, end: 20151226
  71. EBASTEL [Concomitant]
     Active Substance: EBASTINE
     Indication: PRURITUS
     Route: 048
     Dates: start: 20151208, end: 20151226
  72. ENAFON [Concomitant]
     Indication: HEADACHE
     Route: 048
     Dates: start: 20151215, end: 20151226
  73. MAGNESIUM SULFATE. [Concomitant]
     Active Substance: MAGNESIUM SULFATE
     Route: 042
     Dates: start: 20160111, end: 20160111
  74. MIDAZOLAM [Concomitant]
     Active Substance: MIDAZOLAM\MIDAZOLAM HYDROCHLORIDE
     Indication: BRONCHOSCOPY
     Route: 042
     Dates: start: 20160110, end: 20160110
  75. PHOSTEN [Concomitant]
     Indication: HYPOPHOSPHATAEMIA
     Route: 042
     Dates: start: 20160110, end: 20160110
  76. PANTOLOC [Concomitant]
     Active Substance: PANTOPRAZOLE SODIUM
     Route: 048
     Dates: start: 20160122, end: 20160129
  77. ALBUMIN [Concomitant]
     Active Substance: ALBUMIN HUMAN
     Indication: HYPOALBUMINAEMIA
     Route: 042
     Dates: start: 20160110, end: 20160110
  78. ALBUMIN [Concomitant]
     Active Substance: ALBUMIN HUMAN
     Route: 042
     Dates: start: 20160112, end: 20160112
  79. ALBUMIN [Concomitant]
     Active Substance: ALBUMIN HUMAN
     Route: 042
     Dates: start: 20160115, end: 20160115
  80. HUMULIN R [Concomitant]
     Active Substance: INSULIN HUMAN
     Indication: HYPERGLYCAEMIA
     Route: 042
     Dates: start: 20160111, end: 20160112
  81. PACLITAXEL. [Suspect]
     Active Substance: PACLITAXEL
     Indication: BREAST CANCER METASTATIC
     Dosage: MOST RECENT DOSE PRIOR TO THE EVENTS WAS RECEIVED ON 02/OCT/2015 (120 MG), 25/NOV/2015 (95 MG) AND 3
     Route: 042
     Dates: start: 20150924
  82. WINUF PERI [Concomitant]
     Indication: SUPPORTIVE CARE
     Route: 042
     Dates: start: 20160118, end: 20160120
  83. BACTROBAN [Concomitant]
     Active Substance: MUPIROCIN\MUPIROCIN CALCIUM
     Route: 061
     Dates: start: 20151118, end: 20151124
  84. DEXAMETHASONE. [Concomitant]
     Active Substance: DEXAMETHASONE
     Indication: STOMATITIS
     Route: 050
     Dates: start: 20151112, end: 20160128
  85. PENIRAMIN [Concomitant]
     Indication: PRURITUS
     Route: 042
     Dates: start: 20151204, end: 20151204
  86. NEURONTIN (SOUTH KOREA) [Concomitant]
     Route: 048
     Dates: start: 20160109, end: 20160109
  87. MACPERAN [Concomitant]
     Active Substance: METOCLOPRAMIDE HYDROCHLORIDE
     Route: 048
     Dates: start: 20151201, end: 20151205
  88. MIDAZOLAM [Concomitant]
     Active Substance: MIDAZOLAM\MIDAZOLAM HYDROCHLORIDE
     Indication: BRONCHOSCOPY
     Route: 042
     Dates: start: 20151209, end: 20151209
  89. PHOSTEN [Concomitant]
     Indication: HYPOPHOSPHATAEMIA
     Route: 042
     Dates: start: 20160110, end: 20160110
  90. RED BLOOD CELLS [Concomitant]
     Active Substance: HUMAN RED BLOOD CELL
     Indication: ANAEMIA
     Route: 065
     Dates: start: 20151205, end: 20151205
  91. TROPHERINE [Concomitant]
     Route: 047
     Dates: start: 20151019, end: 20151019
  92. ULTIVA [Concomitant]
     Active Substance: REMIFENTANIL HYDROCHLORIDE
     Indication: PROPHYLAXIS
     Route: 042
     Dates: start: 20160110, end: 20160114
  93. PERAMIFLU [Concomitant]
     Active Substance: PERAMIVIR
     Indication: PROPHYLAXIS
     Route: 042
     Dates: start: 20160110, end: 20160112
  94. SEROQUEL [Concomitant]
     Active Substance: QUETIAPINE FUMARATE
     Indication: PROPHYLAXIS
     Route: 030
     Dates: start: 20160111, end: 20160111
  95. HUMULIN R [Concomitant]
     Active Substance: INSULIN HUMAN
     Route: 058
     Dates: start: 20160114, end: 20160114

REACTIONS (5)
  - Respiratory failure [Recovered/Resolved]
  - Febrile neutropenia [Recovered/Resolved]
  - Ejection fraction decreased [Recovered/Resolved]
  - Pneumonia [Recovered/Resolved]
  - Pneumonitis [Recovered/Resolved]

NARRATIVE: CASE EVENT DATE: 20151005
